FAERS Safety Report 25515247 (Version 1)
Quarter: 2025Q3

REPORT INFORMATION
  Report Type: Report from Study
  Country: US (occurrence: US)
  Receive Date: 20250704
  Receipt Date: 20250704
  Transmission Date: 20251021
  Serious: Yes (Other)
  Sender: ABBVIE
  Company Number: US-ABBVIE-6349689

PATIENT
  Age: 81 Year
  Sex: Female

DRUGS (1)
  1. ALPHAGAN P [Suspect]
     Active Substance: BRIMONIDINE TARTRATE
     Indication: Glaucoma
     Dosage: ONE DROP IN EACH EYE?FORM STRENGTH: 0.1 PERCENT
     Route: 047
     Dates: start: 2024

REACTIONS (8)
  - Surgery [Recovering/Resolving]
  - Eye pain [Recovered/Resolved]
  - Allergic respiratory symptom [Recovered/Resolved]
  - Ocular hyperaemia [Recovered/Resolved]
  - Drug hypersensitivity [Recovered/Resolved]
  - Eye irritation [Recovered/Resolved]
  - Rhinorrhoea [Recovered/Resolved]
  - Eye allergy [Recovered/Resolved]

NARRATIVE: CASE EVENT DATE: 20250101
